FAERS Safety Report 5646436-2 (Version None)
Quarter: 2008Q1

REPORT INFORMATION
  Report Type: 
  Country: None (occurrence: None)
  Receive Date: 20080227
  Receipt Date: 20080215
  Transmission Date: 20080703
  Serious: Yes (Hospitalization)
  Sender: FDA-Public Use
  Company Number: GXKR2008DE01716

PATIENT
  Age: 72 Year
  Sex: Female
  Weight: 82 kg

DRUGS (10)
  1. PREDNISOLONE [Suspect]
     Indication: CHRONIC OBSTRUCTIVE PULMONARY DISEASE
     Dosage: 2.5 MG, QD, ORAL; 125 MG, QD, ORAL
     Route: 048
  2. LEVOFLOXACIN [Suspect]
     Indication: BRONCHITIS
     Dosage: SEE IMAGE
     Route: 048
  3. EPOETIN ALFA (EPOETIN ALFA) [Concomitant]
  4. IRON (IRON) [Concomitant]
  5. CALCITRIOL [Concomitant]
  6. ALGELDRATE (ALGELDRATE) [Concomitant]
  7. LEVODOPA BENSERAZIDE HYDROCHLO (BENSERAZIDE HYDROCHLORIDE, LEVODOPA), [Concomitant]
  8. SALMETEROL (SALMETEROL) [Concomitant]
  9. BUDESONIDE [Concomitant]
  10. ACETYLCYSTEINE [Concomitant]

REACTIONS (3)
  - BRONCHITIS [None]
  - PAIN [None]
  - TENDON RUPTURE [None]
